FAERS Safety Report 8818449 (Version 2)
Quarter: 2012Q4

REPORT INFORMATION
  Report Type: 
  Country: JP (occurrence: JP)
  Receive Date: 20121001
  Receipt Date: 20121102
  Transmission Date: 20130627
  Serious: Yes (Hospitalization)
  Sender: FDA-Public Use
  Company Number: JP-ELI_LILLY_AND_COMPANY-JP201209005928

PATIENT
  Age: 68 Year
  Sex: Female

DRUGS (3)
  1. FORTEO [Suspect]
     Dosage: 20 ug, each evening
     Route: 058
     Dates: start: 20120915
  2. LYRICA [Concomitant]
     Indication: NEURALGIA
     Route: 048
  3. LOXONIN [Concomitant]
     Indication: PAIN
     Route: 048

REACTIONS (5)
  - Muscular weakness [Recovered/Resolved]
  - Back pain [Not Recovered/Not Resolved]
  - Fall [Recovered/Resolved]
  - Fall [Recovered/Resolved]
  - Pain of skin [Unknown]
